FAERS Safety Report 4794409-4 (Version None)
Quarter: 2005Q4

REPORT INFORMATION
  Report Type: 
  Country: None (occurrence: None)
  Receive Date: 20051006
  Receipt Date: 20050715
  Transmission Date: 20060501
  Serious: Yes (Hospitalization)
  Sender: FDA-Public Use
  Company Number: XL119050077

PATIENT
  Age: 47 Year
  Sex: Male
  Weight: 90.8 kg

DRUGS (10)
  1. FLUOROURACIL [Suspect]
     Indication: BILIARY NEOPLASM
     Dosage: 375 MG/M2, QDX5, IV BOLUS
     Route: 040
     Dates: start: 20050620, end: 20050624
  2. LEUKOVORIN (LEUKOVORIN) [Suspect]
     Indication: BILIARY NEOPLASM
     Dosage: 25 MG/M2, QDX5, INTRAVENOUS
     Route: 042
     Dates: start: 20050620, end: 20050624
  3. EXOXAPRIN [Concomitant]
  4. DOCUSATE SODIUM (DOCUSATE SODIUM) [Concomitant]
  5. BISACODYL (BISACODYL) [Concomitant]
  6. ACETAMINOPHEN [Concomitant]
  7. ZOLPIDEM TARTRATE [Concomitant]
  8. LORAZEPAM [Concomitant]
  9. DOLASETRON MESILATE (DOLASETRON MESILATE) [Concomitant]
  10. DROPERIDOL [Concomitant]

REACTIONS (1)
  - DEHYDRATION [None]
